FAERS Safety Report 7380292-X (Version None)
Quarter: 2011Q1

REPORT INFORMATION
  Report Type: 
  Country: None (occurrence: None)
  Receive Date: 20110324
  Receipt Date: 20110324
  Transmission Date: 20110831
  Serious: Yes (Disabling)
  Sender: FDA-Public Use
  Company Number: None

PATIENT
  Age: 55 Year
  Sex: Female
  Weight: 82.5547 kg

DRUGS (1)
  1. TYSABRI [Suspect]
     Indication: PROGRESSIVE MULTIPLE SCLEROSIS
     Dosage: IV DRIP ONGOING MONTHLY
     Route: 041
     Dates: start: 20110303

REACTIONS (9)
  - MENTAL DISORDER [None]
  - ASTHENIA [None]
  - HEADACHE [None]
  - EXERCISE TOLERANCE DECREASED [None]
  - HYPOAESTHESIA [None]
  - ARTHRALGIA [None]
  - BALANCE DISORDER [None]
  - MEMORY IMPAIRMENT [None]
  - HALLUCINATION, TACTILE [None]
